FAERS Safety Report 9105540 (Version 1)
Quarter: 2013Q1

REPORT INFORMATION
  Report Type: Spontaneous
  Country: GB (occurrence: GB)
  Receive Date: 20130221
  Receipt Date: 20130221
  Transmission Date: 20140127
  Serious: No
  Sender: FDA-Public Use
  Company Number: GB-TEVA-338230USA

PATIENT
  Age: 73 Year
  Sex: Female

DRUGS (1)
  1. TREANDA [Suspect]
     Route: 042
     Dates: start: 20120510

REACTIONS (1)
  - Medication error [Unknown]
